FAERS Safety Report 4742119-1 (Version None)
Quarter: 2005Q3

REPORT INFORMATION
  Report Type: 
  Country: None (occurrence: None)
  Receive Date: 20050810
  Receipt Date: 20050810
  Transmission Date: 20060218
  Serious: Yes (Hospitalization)
  Sender: FDA-Public Use
  Company Number: None

PATIENT
  Age: 81 Year
  Sex: Male
  Weight: 100.6985 kg

DRUGS (19)
  1. CLOPIDOGREL [Suspect]
     Indication: CORONARY ARTERY DISEASE
     Dosage: 75 MG DAILY RENEWED 12/04-5/16/05
     Dates: start: 20041201, end: 20050516
  2. CLOPIDOGREL [Suspect]
     Indication: PERIPHERAL VASCULAR DISORDER
     Dosage: 75 MG DAILY RENEWED 12/04-5/16/05
     Dates: start: 20041201, end: 20050516
  3. FELODIPINE [Concomitant]
  4. SIMVASTATIN [Concomitant]
  5. CLONIDINE HCL [Concomitant]
  6. LISINOPRIL [Concomitant]
  7. SYNTHROID [Concomitant]
  8. FLUINISOLIDE IHN [Concomitant]
  9. TRAVOPROST [Concomitant]
  10. ALBUTEROL IHN [Concomitant]
  11. CODEINE 10 MG/GUAIFENESIN [Concomitant]
  12. POTASSIUM CHLORIDE [Concomitant]
  13. CALCITRIOL [Concomitant]
  14. CALCIUM /VITAMIN D [Concomitant]
  15. MULTIVITAMIN/MINER [Concomitant]
  16. BREATHERITE SYSTEM [Concomitant]
  17. ACETAMINOPHEN [Concomitant]
  18. FUROSEMIDE (DIURETICS) [Concomitant]
  19. SODIUM CHLORIDE 0.9% [Concomitant]

REACTIONS (3)
  - DIZZINESS [None]
  - GASTROINTESTINAL HAEMORRHAGE [None]
  - HAEMATOCHEZIA [None]
